FAERS Safety Report 5924078-9 (Version None)
Quarter: 2008Q3

REPORT INFORMATION
  Report Type: 
  Country: None (occurrence: None)
  Receive Date: 20080909
  Receipt Date: 20080204
  Transmission Date: 20090109
  Serious: Yes (Death)
  Sender: FDA-Public Use
  Company Number: 163-20785-08020270

PATIENT
  Age: 56 Year
  Sex: Male
  Weight: 108 kg

DRUGS (19)
  1. THALOMID [Suspect]
     Indication: MULTIPLE MYELOMA
     Dosage: 200 MG, DAILY, ORAL ; 100 MG, ORAL
     Route: 048
     Dates: end: 20071021
  2. THALOMID [Suspect]
     Indication: MULTIPLE MYELOMA
     Dosage: 200 MG, DAILY, ORAL ; 100 MG, ORAL
     Route: 048
     Dates: start: 20041207
  3. DEXAMETHASONE TAB [Suspect]
     Indication: MULTIPLE MYELOMA
     Dosage: 1 MG/M2 ; 20 MG, DAYS 1-4, 8-11, Q 4 WKS
     Dates: start: 20041204, end: 20070416
  4. DEXAMETHASONE TAB [Suspect]
     Indication: MULTIPLE MYELOMA
     Dosage: 1 MG/M2 ; 20 MG, DAYS 1-4, 8-11, Q 4 WKS
     Dates: end: 20071018
  5. CISPLATIN [Suspect]
     Indication: MULTIPLE MYELOMA
     Dosage: 40 MG
     Dates: end: 20051014
  6. CISPLATIN [Suspect]
     Indication: MULTIPLE MYELOMA
     Dosage: 40 MG
     Dates: start: 20041207
  7. ADRIAMYCIN PFS [Suspect]
     Indication: MULTIPLE MYELOMA
     Dosage: 10 MG/M2
     Dates: end: 20051014
  8. ADRIAMYCIN PFS [Suspect]
     Indication: MULTIPLE MYELOMA
     Dosage: 10 MG/M2
     Dates: start: 20041207
  9. CYCLOPHOSPHAMIDE [Suspect]
     Indication: MULTIPLE MYELOMA
     Dosage: 400 MG/M2
     Dates: end: 20051014
  10. CYCLOPHOSPHAMIDE [Suspect]
     Indication: MULTIPLE MYELOMA
     Dosage: 400 MG/M2
     Dates: start: 20041207
  11. ETOPOSIDE [Suspect]
     Indication: MULTIPLE MYELOMA
     Dosage: 40 MG/M2 ; 30 MG/M2
     Dates: end: 20051014
  12. ETOPOSIDE [Suspect]
     Indication: MULTIPLE MYELOMA
     Dosage: 40 MG/M2 ; 30 MG/M2
     Dates: start: 20041207
  13. MELPHALAN (MELPHALAN) [Suspect]
     Indication: MULTIPLE MYELOMA
     Dosage: 200 MG/M2
     Dates: start: 20050128, end: 20060516
  14. ZANTAC (RANITIDINE HYDROCHLORIDE) (CAPSULES) [Concomitant]
  15. FLUCONAZOLE (FLUCONAZOLE) (TABLETS) [Concomitant]
  16. MONOPRIL (FOSINOPRIL SODIUM) (TABLETS) [Concomitant]
  17. GLUCOVANCE (GLIBOMET) (TABLETS) [Concomitant]
  18. OXYCODONE HCL (OXYCODONE HYDROCHLORIDE) (TABLETS) [Concomitant]
  19. ACYCLOVIR [Concomitant]

REACTIONS (1)
  - DEATH [None]
